FAERS Safety Report 24457136 (Version 1)
Quarter: 2024Q4

REPORT INFORMATION
  Report Type: Spontaneous
  Country: JP (occurrence: JP)
  Receive Date: 20241018
  Receipt Date: 20241018
  Transmission Date: 20250114
  Serious: Yes (Other)
  Sender: ALEXION PHARMACEUTICALS
  Company Number: JP-ASTRAZENECA-240079982_063010_P_1

PATIENT
  Age: 71 Year

DRUGS (80)
  1. DAPAGLIFLOZIN [Suspect]
     Active Substance: DAPAGLIFLOZIN
     Indication: Cardiac failure chronic
     Dosage: AFTER BREAKFAST
  2. DAPAGLIFLOZIN [Suspect]
     Active Substance: DAPAGLIFLOZIN
     Dosage: AFTER BREAKFAST
  3. DAPAGLIFLOZIN [Suspect]
     Active Substance: DAPAGLIFLOZIN
     Dosage: AFTER BREAKFAST
  4. DAPAGLIFLOZIN [Suspect]
     Active Substance: DAPAGLIFLOZIN
     Dosage: AFTER BREAKFAST
  5. IVABRADINE HYDROCHLORIDE [Suspect]
     Active Substance: IVABRADINE HYDROCHLORIDE
     Dosage: AFTER BREAKFAST AND EVENING MEAL
  6. IVABRADINE HYDROCHLORIDE [Suspect]
     Active Substance: IVABRADINE HYDROCHLORIDE
     Dosage: AFTER BREAKFAST AND EVENING MEAL
  7. IVABRADINE HYDROCHLORIDE [Suspect]
     Active Substance: IVABRADINE HYDROCHLORIDE
     Dosage: AFTER BREAKFAST AND EVENING MEAL
  8. IVABRADINE HYDROCHLORIDE [Suspect]
     Active Substance: IVABRADINE HYDROCHLORIDE
     Dosage: AFTER BREAKFAST AND EVENING MEAL
  9. ASPIRIN [Concomitant]
     Active Substance: ASPIRIN
     Dosage: AFTER BREAKFAST
  10. ASPIRIN [Concomitant]
     Active Substance: ASPIRIN
     Dosage: AFTER BREAKFAST
  11. ASPIRIN [Concomitant]
     Active Substance: ASPIRIN
     Dosage: AFTER BREAKFAST
  12. ASPIRIN [Concomitant]
     Active Substance: ASPIRIN
     Dosage: AFTER BREAKFAST
  13. ROSUVASTATIN CALCIUM [Concomitant]
     Active Substance: ROSUVASTATIN CALCIUM
     Dosage: AFTER BREAKFAST
  14. ROSUVASTATIN CALCIUM [Concomitant]
     Active Substance: ROSUVASTATIN CALCIUM
     Dosage: AFTER BREAKFAST
  15. ROSUVASTATIN CALCIUM [Concomitant]
     Active Substance: ROSUVASTATIN CALCIUM
     Dosage: AFTER BREAKFAST
  16. ROSUVASTATIN CALCIUM [Concomitant]
     Active Substance: ROSUVASTATIN CALCIUM
     Dosage: AFTER BREAKFAST
  17. VONOPRAZAN FUMARATE [Concomitant]
     Active Substance: VONOPRAZAN FUMARATE
     Dosage: AFTER BREAKFAST
  18. VONOPRAZAN FUMARATE [Concomitant]
     Active Substance: VONOPRAZAN FUMARATE
     Dosage: AFTER BREAKFAST
  19. VONOPRAZAN FUMARATE [Concomitant]
     Active Substance: VONOPRAZAN FUMARATE
     Dosage: AFTER BREAKFAST
  20. VONOPRAZAN FUMARATE [Concomitant]
     Active Substance: VONOPRAZAN FUMARATE
     Dosage: AFTER BREAKFAST
  21. VONOPRAZAN FUMARATE [Concomitant]
     Active Substance: VONOPRAZAN FUMARATE
     Dosage: AFTER BREAKFAST
  22. VONOPRAZAN FUMARATE [Concomitant]
     Active Substance: VONOPRAZAN FUMARATE
     Dosage: AFTER BREAKFAST
  23. VONOPRAZAN FUMARATE [Concomitant]
     Active Substance: VONOPRAZAN FUMARATE
     Dosage: AFTER BREAKFAST
  24. VONOPRAZAN FUMARATE [Concomitant]
     Active Substance: VONOPRAZAN FUMARATE
     Dosage: AFTER BREAKFAST
  25. EDOXABAN TOSYLATE [Concomitant]
     Active Substance: EDOXABAN TOSYLATE
     Dosage: AFTER BREAKFAST
  26. EDOXABAN TOSYLATE [Concomitant]
     Active Substance: EDOXABAN TOSYLATE
     Dosage: AFTER BREAKFAST
  27. EDOXABAN TOSYLATE [Concomitant]
     Active Substance: EDOXABAN TOSYLATE
     Dosage: AFTER BREAKFAST
  28. EDOXABAN TOSYLATE [Concomitant]
     Active Substance: EDOXABAN TOSYLATE
     Dosage: AFTER BREAKFAST
  29. SAMSCA [Concomitant]
     Active Substance: TOLVAPTAN
     Dosage: AFTER BREAKFAST
  30. SAMSCA [Concomitant]
     Active Substance: TOLVAPTAN
     Dosage: AFTER BREAKFAST
  31. SAMSCA [Concomitant]
     Active Substance: TOLVAPTAN
     Dosage: AFTER BREAKFAST
  32. SAMSCA [Concomitant]
     Active Substance: TOLVAPTAN
     Dosage: AFTER BREAKFAST
  33. DAYVIGO [Concomitant]
     Active Substance: LEMBOREXANT
     Dosage: BEFORE BEDTIME
  34. DAYVIGO [Concomitant]
     Active Substance: LEMBOREXANT
     Dosage: BEFORE BEDTIME
  35. DAYVIGO [Concomitant]
     Active Substance: LEMBOREXANT
     Dosage: BEFORE BEDTIME
  36. DAYVIGO [Concomitant]
     Active Substance: LEMBOREXANT
     Dosage: BEFORE BEDTIME
  37. PELIXAL [Concomitant]
     Dosage: AFTER BREAKFAST
  38. PELIXAL [Concomitant]
     Dosage: AFTER BREAKFAST
  39. PELIXAL [Concomitant]
     Dosage: AFTER BREAKFAST
  40. PELIXAL [Concomitant]
     Dosage: AFTER BREAKFAST
  41. PELIXAL [Concomitant]
     Dosage: AFTER BREAKFAST
  42. PELIXAL [Concomitant]
     Dosage: AFTER BREAKFAST
  43. SPIRONOLACTONE [Concomitant]
     Active Substance: SPIRONOLACTONE
     Dosage: AFTER BREAKFAST
  44. SPIRONOLACTONE [Concomitant]
     Active Substance: SPIRONOLACTONE
     Dosage: AFTER BREAKFAST
  45. SPIRONOLACTONE [Concomitant]
     Active Substance: SPIRONOLACTONE
     Dosage: AFTER BREAKFAST
  46. SPIRONOLACTONE [Concomitant]
     Active Substance: SPIRONOLACTONE
     Dosage: AFTER BREAKFAST
  47. AZOSEMIDE [Concomitant]
     Active Substance: AZOSEMIDE
     Dosage: AFTER BREAKFAST
  48. AZOSEMIDE [Concomitant]
     Active Substance: AZOSEMIDE
     Dosage: AFTER BREAKFAST
  49. AZOSEMIDE [Concomitant]
     Active Substance: AZOSEMIDE
     Dosage: AFTER BREAKFAST
  50. AZOSEMIDE [Concomitant]
     Active Substance: AZOSEMIDE
     Dosage: AFTER BREAKFAST
  51. PIMOBENDAN [Concomitant]
     Active Substance: PIMOBENDAN
     Dosage: AFTER BREAKFAST AND EVENING MEAL
  52. PIMOBENDAN [Concomitant]
     Active Substance: PIMOBENDAN
     Dosage: AFTER BREAKFAST AND EVENING MEAL
  53. PIMOBENDAN [Concomitant]
     Active Substance: PIMOBENDAN
     Dosage: AFTER BREAKFAST AND EVENING MEAL
  54. PIMOBENDAN [Concomitant]
     Active Substance: PIMOBENDAN
     Dosage: AFTER BREAKFAST AND EVENING MEAL
  55. AMITIZA [Concomitant]
     Active Substance: LUBIPROSTONE
     Dosage: AFTER BREAKFAST AND EVENING MEAL
  56. AMITIZA [Concomitant]
     Active Substance: LUBIPROSTONE
     Dosage: AFTER BREAKFAST AND EVENING MEAL
  57. AMITIZA [Concomitant]
     Active Substance: LUBIPROSTONE
     Dosage: AFTER BREAKFAST AND EVENING MEAL
  58. AMITIZA [Concomitant]
     Active Substance: LUBIPROSTONE
     Dosage: AFTER BREAKFAST AND EVENING MEAL
  59. AMIODARONE HYDROCHLORIDE [Concomitant]
     Active Substance: AMIODARONE HYDROCHLORIDE
     Dosage: AFTER BREAKFAST AND EVENING MEAL
  60. AMIODARONE HYDROCHLORIDE [Concomitant]
     Active Substance: AMIODARONE HYDROCHLORIDE
     Dosage: AFTER BREAKFAST AND EVENING MEAL
  61. AMIODARONE HYDROCHLORIDE [Concomitant]
     Active Substance: AMIODARONE HYDROCHLORIDE
     Dosage: AFTER BREAKFAST AND EVENING MEAL
  62. AMIODARONE HYDROCHLORIDE [Concomitant]
     Active Substance: AMIODARONE HYDROCHLORIDE
     Dosage: AFTER BREAKFAST AND EVENING MEAL
  63. FERRIC CITRATE ANHYDROUS [Concomitant]
     Active Substance: FERRIC CITRATE ANHYDROUS
     Dosage: AFTER BREAKFAST AND EVENING MEAL
  64. FERRIC CITRATE ANHYDROUS [Concomitant]
     Active Substance: FERRIC CITRATE ANHYDROUS
     Dosage: AFTER BREAKFAST AND EVENING MEAL
  65. FERRIC CITRATE ANHYDROUS [Concomitant]
     Active Substance: FERRIC CITRATE ANHYDROUS
     Dosage: AFTER BREAKFAST AND EVENING MEAL
  66. FERRIC CITRATE ANHYDROUS [Concomitant]
     Active Substance: FERRIC CITRATE ANHYDROUS
     Dosage: AFTER BREAKFAST AND EVENING MEAL
  67. ENALAPRIL MALEATE [Concomitant]
     Active Substance: ENALAPRIL MALEATE
     Dosage: AFTER BREAKFAST
  68. ENALAPRIL MALEATE [Concomitant]
     Active Substance: ENALAPRIL MALEATE
     Dosage: AFTER BREAKFAST
  69. ENALAPRIL MALEATE [Concomitant]
     Active Substance: ENALAPRIL MALEATE
     Dosage: AFTER BREAKFAST
  70. ENALAPRIL MALEATE [Concomitant]
     Active Substance: ENALAPRIL MALEATE
     Dosage: AFTER BREAKFAST
  71. IMEGLIMIN HYDROCHLORIDE [Concomitant]
     Active Substance: IMEGLIMIN HYDROCHLORIDE
     Dosage: AFTER BREAKFAST AND EVENING MEAL
  72. IMEGLIMIN HYDROCHLORIDE [Concomitant]
     Active Substance: IMEGLIMIN HYDROCHLORIDE
     Dosage: AFTER BREAKFAST AND EVENING MEAL
  73. IMEGLIMIN HYDROCHLORIDE [Concomitant]
     Active Substance: IMEGLIMIN HYDROCHLORIDE
     Dosage: AFTER BREAKFAST AND EVENING MEAL
  74. IMEGLIMIN HYDROCHLORIDE [Concomitant]
     Active Substance: IMEGLIMIN HYDROCHLORIDE
     Dosage: AFTER BREAKFAST AND EVENING MEAL
  75. VILDAGLIPTIN [Concomitant]
     Active Substance: VILDAGLIPTIN
     Dosage: AFTER BREAKFAST AND EVENING MEAL
  76. VILDAGLIPTIN [Concomitant]
     Active Substance: VILDAGLIPTIN
     Dosage: AFTER BREAKFAST AND EVENING MEAL
  77. VILDAGLIPTIN [Concomitant]
     Active Substance: VILDAGLIPTIN
     Dosage: AFTER BREAKFAST AND EVENING MEAL
  78. VILDAGLIPTIN [Concomitant]
     Active Substance: VILDAGLIPTIN
     Dosage: AFTER BREAKFAST AND EVENING MEAL
  79. MAGNESIUM OXIDE [Concomitant]
     Active Substance: MAGNESIUM OXIDE
     Dosage: AFTER BREAKFAST
  80. MAGNESIUM OXIDE [Concomitant]
     Active Substance: MAGNESIUM OXIDE
     Dosage: AFTER BREAKFAST

REACTIONS (1)
  - Renal impairment [Recovered/Resolved]
